FAERS Safety Report 21587864 (Version 6)
Quarter: 2024Q4

REPORT INFORMATION
  Report Type: Report from Study
  Country: DE (occurrence: DE)
  Receive Date: 20221114
  Receipt Date: 20241029
  Transmission Date: 20250115
  Serious: Yes (Hospitalization)
  Sender: ROCHE
  Company Number: DE-ROCHE-2482054

PATIENT
  Age: 45 Year
  Sex: Female

DRUGS (5)
  1. OCREVUS [Suspect]
     Active Substance: OCRELIZUMAB
     Indication: Relapsing-remitting multiple sclerosis
     Dosage: 600 MG 211 DAYS, SUBSEQUENT DOSE ON 18/NOV/2019
     Route: 042
     Dates: start: 20191104
  2. OCREVUS [Suspect]
     Active Substance: OCRELIZUMAB
     Route: 042
     Dates: start: 20200528
  3. OCREVUS [Suspect]
     Active Substance: OCRELIZUMAB
     Route: 042
     Dates: start: 20210518
  4. BACLOFEN [Concomitant]
     Active Substance: BACLOFEN
     Indication: Muscle spasticity
     Route: 048
  5. METAMIZOLE [Concomitant]
     Active Substance: METAMIZOLE

REACTIONS (21)
  - Muscle spasticity [Not Recovered/Not Resolved]
  - Oropharyngeal pain [Recovered/Resolved]
  - Fatigue [Recovered/Resolved]
  - Erythema [Recovered/Resolved]
  - Feeling hot [Recovered/Resolved]
  - Gastric infection [Recovered/Resolved]
  - Nasopharyngitis [Recovered/Resolved]
  - Dysphonia [Recovered/Resolved]
  - Cardiovascular disorder [Recovered/Resolved]
  - Hypotension [Unknown]
  - Peroneal nerve palsy [Recovered/Resolved]
  - White blood cell count decreased [Recovered/Resolved]
  - Cough [Recovered/Resolved]
  - Suspected COVID-19 [Recovered/Resolved]
  - Balance disorder [Recovered/Resolved]
  - Dizziness [Recovered/Resolved]
  - Muscle spasticity [Not Recovered/Not Resolved]
  - Rosacea [Recovered/Resolved]
  - Arthropod bite [Recovered/Resolved]
  - Peripheral swelling [Recovered/Resolved]
  - Tendonitis [Recovered/Resolved]

NARRATIVE: CASE EVENT DATE: 20191104
